FAERS Safety Report 13876260 (Version 1)
Quarter: 2017Q3

REPORT INFORMATION
  Report Type: Spontaneous
  Country: US (occurrence: None)
  Receive Date: 20170814
  Receipt Date: 20170814
  Transmission Date: 20171127
  Serious: Yes (Disabling)
  Sender: FDA-Public Use
  Company Number: None

PATIENT
  Age: 62 Year
  Sex: Female
  Weight: 57.61 kg

DRUGS (4)
  1. ARMOUR THYROID [Concomitant]
     Active Substance: THYROID, PORCINE
  2. PROLIA [Suspect]
     Active Substance: DENOSUMAB
     Indication: OSTEOPOROSIS
     Dates: start: 20170220, end: 20170220
  3. CITRACAL CALCIUM SUPPLEMENT PLUS D3 [Concomitant]
  4. RAMIPRIL. [Concomitant]
     Active Substance: RAMIPRIL

REACTIONS (10)
  - Muscular weakness [None]
  - Arthralgia [None]
  - Bone pain [None]
  - Injection site pain [None]
  - Musculoskeletal disorder [None]
  - Myalgia [None]
  - Exercise tolerance decreased [None]
  - Pain [None]
  - Pain in extremity [None]
  - Drug effect incomplete [None]

NARRATIVE: CASE EVENT DATE: 20170220
